FAERS Safety Report 25225030 (Version 1)
Quarter: 2025Q2

REPORT INFORMATION
  Report Type: Spontaneous
  Country: US (occurrence: None)
  Receive Date: 20250421
  Receipt Date: 20250421
  Transmission Date: 20250716
  Serious: No
  Sender: FDA-CTU
  Company Number: None

PATIENT
  Age: 68 Year
  Sex: Female
  Weight: 114.31 kg

DRUGS (1)
  1. COSENTYX [Suspect]
     Active Substance: SECUKINUMAB
     Indication: Psoriatic arthropathy
     Dosage: INJECT 300MG (2  PENS) SUBCUTANEOUSLY EVERY 4 WEEKS AS DIRECTED. ?
     Route: 058
     Dates: start: 202405

REACTIONS (3)
  - Blood sodium decreased [None]
  - Large intestinal obstruction [None]
  - Renal disorder [None]
